FAERS Safety Report 17860173 (Version 2)
Quarter: 2020Q2

REPORT INFORMATION
  Report Type: Report from Study
  Country: RO (occurrence: RO)
  Receive Date: 20200604
  Receipt Date: 20200610
  Transmission Date: 20200714
  Serious: Yes (Death)
  Sender: FDA-Public Use
  Company Number: NVSC2020RO153565

PATIENT
  Age: 74 Year
  Sex: Female

DRUGS (1)
  1. EXELON [Suspect]
     Active Substance: RIVASTIGMINE TARTRATE
     Indication: MEMORY IMPAIRMENT
     Dosage: 9.5 MG PATCH 10 (CM2)
     Route: 062

REACTIONS (3)
  - Asphyxia [Fatal]
  - Lung neoplasm malignant [Fatal]
  - Blood pressure fluctuation [Unknown]
